FAERS Safety Report 11432749 (Version 1)
Quarter: 2015Q3

REPORT INFORMATION
  Report Type: Report from Study
  Country: CO (occurrence: CO)
  Receive Date: 20150828
  Receipt Date: 20150828
  Transmission Date: 20151125
  Serious: Yes (Death)
  Sender: FDA-Public Use
  Company Number: CO-ABBVIE-15P-036-1453571-00

PATIENT
  Age: 79 Year
  Sex: Male
  Weight: 69 kg

DRUGS (2)
  1. ENALAPRIL [Concomitant]
     Active Substance: ENALAPRIL
     Indication: PRODUCT USED FOR UNKNOWN INDICATION
     Route: 065
  2. ZEMPLAR [Suspect]
     Active Substance: PARICALCITOL
     Indication: HYPERPARATHYROIDISM SECONDARY
     Route: 048
     Dates: start: 20141111, end: 20150505

REACTIONS (6)
  - Disease complication [Fatal]
  - Multi-organ failure [Fatal]
  - Respiratory distress [Fatal]
  - Fluid retention [Fatal]
  - Abdominal distension [Fatal]
  - Abdominal pain [Fatal]

NARRATIVE: CASE EVENT DATE: 20150804
